FAERS Safety Report 19109267 (Version 1)
Quarter: 2021Q2

REPORT INFORMATION
  Report Type: Report from Study
  Country: ES (occurrence: ES)
  Receive Date: 20210409
  Receipt Date: 20210409
  Transmission Date: 20210717
  Serious: Yes (Other)
  Sender: FDA-Public Use
  Company Number: ES-AUROBINDO-AUR-APL-2019-077348

PATIENT
  Age: 22 Year
  Sex: Female

DRUGS (11)
  1. ACETYLSALICYLIC ACID [Suspect]
     Active Substance: ASPIRIN
     Indication: DRUG PROVOCATION TEST
     Dosage: 50 MILLIGRAM, DAY 1
     Route: 048
  2. ACETYLSALICYLIC ACID [Suspect]
     Active Substance: ASPIRIN
     Dosage: 250 MILLIGRAM, DAY 1
     Route: 048
  3. ACETYLSALICYLIC ACID [Suspect]
     Active Substance: ASPIRIN
     Dosage: 125 MILLIGRAM, DAY 1
     Route: 048
  4. ACETYLSALICYLIC ACID [Suspect]
     Active Substance: ASPIRIN
     Dosage: 500 MILLIGRAM, DAY 2
     Route: 048
  5. TRIFLUSAL [Concomitant]
     Active Substance: TRIFLUSAL
     Indication: DRUG PROVOCATION TEST
     Dosage: 75 MILLIGRAM, DAY 1
     Route: 048
  6. TRIFLUSAL [Concomitant]
     Active Substance: TRIFLUSAL
     Dosage: 300 MILLIGRAM, DAY 1
     Route: 048
  7. TRIFLUSAL [Concomitant]
     Active Substance: TRIFLUSAL
     Dosage: 600 MILLIGRAM, DAY 2
     Route: 048
  8. PARACETAMOL [Suspect]
     Active Substance: ACETAMINOPHEN
     Indication: DRUG PROVOCATION TEST
     Dosage: UNK
     Route: 065
  9. TRIFLUSAL [Concomitant]
     Active Substance: TRIFLUSAL
     Dosage: 150 MILLIGRAM, DAY 1
     Route: 048
  10. IBUPROFEN. [Suspect]
     Active Substance: IBUPROFEN
     Indication: DRUG PROVOCATION TEST
     Dosage: UNK
     Route: 065
  11. TRIFLUSAL [Concomitant]
     Active Substance: TRIFLUSAL
     Dosage: 300 MILLIGRAM, DAY 2
     Route: 048

REACTIONS (2)
  - Angioedema [Unknown]
  - Type I hypersensitivity [Unknown]
